FAERS Safety Report 16440479 (Version 2)
Quarter: 2019Q2

REPORT INFORMATION
  Report Type: Spontaneous
  Country: FR (occurrence: FR)
  Receive Date: 20190617
  Receipt Date: 20190620
  Transmission Date: 20190711
  Serious: Yes (Death, Life-Threatening, Other)
  Sender: FDA-Public Use
  Company Number: PHHY2019FR137082

PATIENT
  Age: 33 Year
  Sex: Male

DRUGS (5)
  1. DOXORUBICIN [Suspect]
     Active Substance: DOXORUBICIN
     Dosage: 25 MG/M2, CYCLIC (DOSE REDUCTION OF ADRIAMYCIN)
     Route: 065
     Dates: start: 200402
  2. PREDNISONE. [Suspect]
     Active Substance: PREDNISONE
     Indication: CUTANEOUS T-CELL LYMPHOMA
     Dosage: UNK UNK, CYCLIC
     Route: 065
     Dates: start: 200206
  3. CYCLOPHOSPHAMIDE. [Suspect]
     Active Substance: CYCLOPHOSPHAMIDE
     Indication: CUTANEOUS T-CELL LYMPHOMA
     Dosage: UNK UNK, CYCLIC
     Route: 065
     Dates: start: 200206
  4. VINCRISTINE [Suspect]
     Active Substance: VINCRISTINE
     Indication: CUTANEOUS T-CELL LYMPHOMA
     Dosage: UNK UNK, CYCLIC (REDUCING THE DOSES OF OTHER MOLECULES BY 30 PERCENT)
     Route: 065
     Dates: start: 200206
  5. DOXORUBICIN [Suspect]
     Active Substance: DOXORUBICIN
     Indication: CUTANEOUS T-CELL LYMPHOMA
     Dosage: UNK UNK, CYCLIC
     Route: 065
     Dates: start: 200206

REACTIONS (5)
  - Staphylococcal sepsis [Fatal]
  - Bone marrow toxicity [Fatal]
  - Cardiotoxicity [Fatal]
  - Lung infection [Fatal]
  - Paraesthesia [Fatal]
